FAERS Safety Report 9915246 (Version 2)
Quarter: 2014Q2

REPORT INFORMATION
  Report Type: Report from Study
  Country: PL (occurrence: PL)
  Receive Date: 20140221
  Receipt Date: 20140612
  Transmission Date: 20141212
  Serious: Yes (Life-Threatening, Hospitalization, Other)
  Sender: FDA-Public Use
  Company Number: PL-BRISTOL-MYERS SQUIBB COMPANY-20173472

PATIENT
  Age: 83 Year
  Sex: Male

DRUGS (4)
  1. APIXABAN [Suspect]
     Indication: THROMBOSIS PROPHYLAXIS
     Dosage: NO OF COURSE:2
     Route: 048
     Dates: start: 20101027, end: 20140115
  2. ACETYLSALICYLIC ACID [Concomitant]
     Dates: start: 20140116
  3. CLOPIDOGREL BISULFATE [Concomitant]
     Dates: start: 20140116
  4. ENOXAPARIN [Concomitant]
     Dates: start: 20140116

REACTIONS (1)
  - Myocardial infarction [Recovered/Resolved with Sequelae]
